FAERS Safety Report 24412842 (Version 2)
Quarter: 2024Q4

REPORT INFORMATION
  Report Type: Spontaneous
  Country: FR (occurrence: FR)
  Receive Date: 20241008
  Receipt Date: 20241120
  Transmission Date: 20250115
  Serious: Yes (Life-Threatening, Hospitalization, Other)
  Sender: MYLAN
  Company Number: FR-ROCHE-10000087606

PATIENT
  Age: 67 Year
  Sex: Male
  Weight: 82 kg

DRUGS (45)
  1. PREDNISONE [Suspect]
     Active Substance: PREDNISONE
     Indication: Diffuse large B-cell lymphoma stage I
     Dosage: UNK, ONGOING
     Route: 065
     Dates: start: 20240705
  2. PREDNISONE [Suspect]
     Active Substance: PREDNISONE
     Indication: Richter^s syndrome
     Dosage: 100 MILLIGRAM, QD (C1D1-D5R-CHOP)
     Route: 048
     Dates: start: 20240725, end: 20240729
  3. PREDNISONE [Suspect]
     Active Substance: PREDNISONE
     Dosage: 100 MILLIGRAM, QD,(C1D1-D5R-CHOP)
     Route: 048
     Dates: start: 20240829, end: 20240902
  4. PREDNISONE [Suspect]
     Active Substance: PREDNISONE
     Dosage: 100 MILLIGRAM, QD
     Route: 048
     Dates: start: 20240902
  5. DOXORUBICIN [Suspect]
     Active Substance: DOXORUBICIN
     Indication: Diffuse large B-cell lymphoma stage I
     Dosage: 50 MILLIGRAM/SQ. METER (C1D1- C2D1R-CHOP)
     Route: 042
     Dates: start: 20240725, end: 20240829
  6. DOXORUBICIN [Suspect]
     Active Substance: DOXORUBICIN
     Indication: Richter^s syndrome
     Dosage: 50 MILLIGRAM/SQ. METER (C3D1)
     Route: 042
     Dates: start: 20240926
  7. RITUXIMAB [Suspect]
     Active Substance: RITUXIMAB
     Indication: Diffuse large B-cell lymphoma stage I
     Dosage: 375 MILLIGRAM/SQ. METER (C1D1-C2D1)
     Route: 042
     Dates: start: 20240725, end: 20240829
  8. RITUXIMAB [Suspect]
     Active Substance: RITUXIMAB
     Indication: Richter^s syndrome
     Dosage: 375 MILLIGRAM/SQ. METER (C1D1-C2D1)
     Route: 042
     Dates: start: 20240926
  9. VINCRISTINE [Suspect]
     Active Substance: VINCRISTINE
     Indication: Diffuse large B-cell lymphoma stage I
     Dosage: 1.4 MILLIGRAM/SQ. METER (C1D1- C2D1R-CHOP)
     Route: 042
     Dates: start: 20240725, end: 20240829
  10. VINCRISTINE [Suspect]
     Active Substance: VINCRISTINE
     Indication: Richter^s syndrome
     Dosage: 1.4 MILLIGRAM/SQ. METER,(C3D1)
     Route: 042
     Dates: start: 20240926
  11. EPCORITAMAB [Suspect]
     Active Substance: EPCORITAMAB
     Indication: Diffuse large B-cell lymphoma stage I
     Dosage: 0.16 MILLIGRAM,(C1D1 PRIMING DOSE)
     Route: 058
     Dates: start: 20240726, end: 20240726
  12. EPCORITAMAB [Suspect]
     Active Substance: EPCORITAMAB
     Indication: Richter^s syndrome
     Dosage: 0.16 MILLIGRAM (REPRIMING DOSE (RPD1)
     Route: 058
     Dates: start: 20240809, end: 20240809
  13. EPCORITAMAB [Suspect]
     Active Substance: EPCORITAMAB
     Dosage: 0.8 MILLIGRAM (INTERMEDIATE DOSE ON C1D8)
     Route: 058
     Dates: start: 20240816, end: 20240816
  14. EPCORITAMAB [Suspect]
     Active Substance: EPCORITAMAB
     Dosage: 48 MILLIGRAM (FULL DOSE OF 48 MG ON C1D15)
     Route: 058
     Dates: start: 20240823
  15. EPCORITAMAB [Suspect]
     Active Substance: EPCORITAMAB
     Dosage: 0.8 MILLIGRAM,(REPRIMING DOSE (RPD8)
     Route: 058
     Dates: start: 20240816, end: 20240816
  16. EPCORITAMAB [Suspect]
     Active Substance: EPCORITAMAB
     Dosage: 2 FULL DOSES WITH THE LATEST ADMINISTRATION ON 30-AUG-2024
     Route: 058
     Dates: end: 20240830
  17. EPCORITAMAB [Suspect]
     Active Substance: EPCORITAMAB
     Dosage: 48 MILLIGRAM,(C2D8)
     Route: 058
     Dates: end: 20240913
  18. CYCLOPHOSPHAMIDE [Suspect]
     Active Substance: CYCLOPHOSPHAMIDE
     Indication: Diffuse large B-cell lymphoma stage I
     Dosage: 750 MILLIGRAM/SQ. METER (C1D1- C2D1)
     Route: 042
     Dates: start: 20240725, end: 20240829
  19. CYCLOPHOSPHAMIDE [Suspect]
     Active Substance: CYCLOPHOSPHAMIDE
     Indication: Richter^s syndrome
     Dosage: 750 MILLIGRAM/SQ. METER
     Route: 042
     Dates: start: 20240926
  20. PREDNISONE [Suspect]
     Active Substance: PREDNISONE
     Indication: Richter^s syndrome
     Dosage: 100 MILLIGRAM, QD
     Route: 042
  21. MORPHINE [Concomitant]
     Active Substance: MORPHINE
     Dosage: UNK
     Route: 065
     Dates: start: 20240806, end: 20240811
  22. VALACYCLOVIR HYDROCHLORIDE [Concomitant]
     Active Substance: VALACYCLOVIR HYDROCHLORIDE
     Dosage: ONGOING
     Route: 065
     Dates: start: 2019
  23. OMEPRAZOLE [Concomitant]
     Active Substance: OMEPRAZOLE
     Dosage: UNK
     Route: 065
     Dates: start: 2018, end: 20240815
  24. FILGRASTIM [Concomitant]
     Active Substance: FILGRASTIM
     Dosage: UNK
     Route: 065
     Dates: start: 20240801, end: 20240814
  25. POLARAMINE [Concomitant]
     Active Substance: DEXCHLORPHENIRAMINE MALEATE
     Dosage: UNK
     Route: 065
     Dates: start: 20240830, end: 20240830
  26. PERINDOPRIL [Concomitant]
     Active Substance: PERINDOPRIL
     Dosage: ONGOING
     Route: 065
     Dates: start: 20240822
  27. PANTOPRAZOLE [Concomitant]
     Active Substance: PANTOPRAZOLE
     Dosage: UNK
     Route: 065
     Dates: start: 20240808, end: 20240812
  28. LANSOPRAZOLE [Concomitant]
     Active Substance: LANSOPRAZOLE
     Dosage: ONGOING
     Route: 065
     Dates: start: 20240824
  29. SKENAN [Concomitant]
     Active Substance: MORPHINE SULFATE
     Dosage: ONGOING
     Route: 065
     Dates: start: 20240811
  30. DEXAMETHASONE [Concomitant]
     Active Substance: DEXAMETHASONE
     Dosage: 15 MILLIGRAM
     Route: 042
     Dates: start: 20240816, end: 20240826
  31. ALLOPURINOL [Concomitant]
     Active Substance: ALLOPURINOL
     Dosage: ONGOING
     Route: 065
     Dates: start: 20231213
  32. CEFTRIAXONE [Concomitant]
     Active Substance: CEFTRIAXONE
     Dosage: UNK
     Route: 065
     Dates: start: 20240804, end: 20240814
  33. METFORMIN HYDROCHLORIDE [Concomitant]
     Active Substance: METFORMIN HYDROCHLORIDE
     Dosage: ONGOING
     Route: 065
     Dates: start: 2023
  34. DAPTOMYCIN [Concomitant]
     Active Substance: DAPTOMYCIN
     Dosage: UNK
     Route: 065
     Dates: start: 20240802, end: 20240809
  35. KARDEGIC [Concomitant]
     Active Substance: ASPIRIN DL-LYSINE
     Dosage: ONGOING
     Route: 065
     Dates: start: 2008
  36. EFFERALGAN [Concomitant]
     Active Substance: ACETAMINOPHEN
     Dosage: UNK
     Route: 065
     Dates: start: 20240830, end: 20240830
  37. LERCANIDIPINE [Concomitant]
     Active Substance: LERCANIDIPINE
     Dosage: UNK
     Route: 065
     Dates: start: 2023, end: 20240815
  38. Bi preterax [Concomitant]
     Dosage: UNK
     Route: 065
  39. LIPTRUZET [Concomitant]
     Active Substance: ATORVASTATIN CALCIUM\EZETIMIBE
     Dosage: ONGOING
     Route: 065
     Dates: start: 2008
  40. ERYTHROPOIETIN [Concomitant]
     Active Substance: ERYTHROPOIETIN
     Dosage: ONGOING
     Route: 065
     Dates: start: 20240812
  41. PIPERACILLIN SODIUM\TAZOBACTAM SODIUM [Concomitant]
     Active Substance: PIPERACILLIN SODIUM\TAZOBACTAM SODIUM
     Dosage: UNK
     Route: 065
     Dates: start: 20240801, end: 20240803
  42. PREDNISONE [Concomitant]
     Active Substance: PREDNISONE
     Dosage: UNK
     Route: 065
     Dates: start: 20240705
  43. PREDNISONE [Concomitant]
     Active Substance: PREDNISONE
     Dosage: 100 MILLIGRAM
     Route: 048
     Dates: start: 20240725, end: 20240729
  44. NEBIVOLOL [Concomitant]
     Active Substance: NEBIVOLOL
     Dosage: UNK
     Route: 065
     Dates: start: 2008
  45. BACTRIM [Concomitant]
     Active Substance: SULFAMETHOXAZOLE\TRIMETHOPRIM
     Dosage: UNK
     Route: 065
     Dates: start: 2019

REACTIONS (8)
  - Neutrophil count decreased [Recovered/Resolved]
  - Thrombocytopenia [Unknown]
  - Gastric ulcer [Unknown]
  - Febrile neutropenia [Recovered/Resolved]
  - Escherichia sepsis [Unknown]
  - Staphylococcal bacteraemia [Unknown]
  - Oesophagitis [Unknown]
  - Off label use [Unknown]

NARRATIVE: CASE EVENT DATE: 20240801
